FAERS Safety Report 8202630-8 (Version None)
Quarter: 2012Q1

REPORT INFORMATION
  Report Type: 
  Country: None (occurrence: None)
  Receive Date: 20120312
  Receipt Date: 20120308
  Transmission Date: 20120608
  Serious: Yes (Death)
  Sender: FDA-Public Use
  Company Number: EG-PFIZER INC-2012061805

PATIENT
  Age: 68 Year
  Sex: Female

DRUGS (1)
  1. PHENYTOIN SODIUM [Suspect]
     Indication: POSTOPERATIVE CARE
     Dosage: 150 MG, 3X/DAY
     Dates: start: 20120101, end: 20120101

REACTIONS (1)
  - DEATH [None]
